FAERS Safety Report 5407183-5 (Version None)
Quarter: 2007Q3

REPORT INFORMATION
  Report Type: 
  Country: None (occurrence: None)
  Receive Date: 20070807
  Receipt Date: 20070801
  Transmission Date: 20080115
  Serious: Yes (Life-Threatening, Hospitalization)
  Sender: FDA-Public Use
  Company Number: JP-BRACCO-BRO-011890

PATIENT
  Age: 79 Year
  Sex: Female

DRUGS (5)
  1. IOPAMIRON [Suspect]
     Route: 042
     Dates: start: 20070713, end: 20070713
  2. GANATON [Concomitant]
     Route: 050
  3. TAGAMET                            /00397401/ [Concomitant]
     Route: 050
  4. CEREKINON [Concomitant]
     Route: 050
  5. MONILAC [Concomitant]
     Route: 050

REACTIONS (1)
  - CARDIOGENIC SHOCK [None]
